FAERS Safety Report 4654603-X (Version None)
Quarter: 2005Q2

REPORT INFORMATION
  Report Type: 
  Country: None (occurrence: None)
  Receive Date: 20050503
  Receipt Date: 20050503
  Transmission Date: 20051028
  Serious: Yes (Life-Threatening, Hospitalization)
  Sender: FDA-Public Use
  Company Number: None

PATIENT
  Age: 69 Year
  Sex: Male
  Weight: 97.1 kg

DRUGS (8)
  1. ATENOLOL [Suspect]
     Indication: HYPERTENSION
     Dosage: 50 MG  P.0.  DAILY
     Route: 048
     Dates: start: 20040601, end: 20050316
  2. LISINOPRIL [Concomitant]
  3. OMEPRAZOLE [Concomitant]
  4. SIMVASTATIN [Concomitant]
  5. COUMADIN [Concomitant]
  6. ASPIRIN [Concomitant]
  7. SERTRALINE HCL [Concomitant]
  8. HYDROCHLOROTHIAZIDE [Concomitant]

REACTIONS (3)
  - BRADYCARDIA [None]
  - HYPOTENSION [None]
  - NODAL RHYTHM [None]
